FAERS Safety Report 11837672 (Version 3)
Quarter: 2016Q2

REPORT INFORMATION
  Report Type: Spontaneous
  Country: PT (occurrence: PT)
  Receive Date: 20151215
  Receipt Date: 20160505
  Transmission Date: 20160815
  Serious: Yes (Life-Threatening, Other)
  Sender: FDA-Public Use
  Company Number: PT-GILEAD-2015-0185818

PATIENT
  Age: 59 Year
  Sex: Female
  Weight: 100 kg

DRUGS (5)
  1. EXFORGE [Concomitant]
     Active Substance: AMLODIPINE BESYLATE\VALSARTAN
     Indication: HYPERTENSION
  2. HARVONI [Suspect]
     Active Substance: LEDIPASVIR\SOFOSBUVIR
     Indication: HEPATITIS C
     Dosage: 1 DF, QD
     Route: 048
     Dates: start: 20150520, end: 20150808
  3. ALOPURINOL [Suspect]
     Active Substance: ALLOPURINOL
     Indication: BLOOD URIC ACID
     Dosage: 300 MG, QD
     Route: 048
     Dates: start: 20150726, end: 20150801
  4. EXFORGE [Concomitant]
     Active Substance: AMLODIPINE BESYLATE\VALSARTAN
     Dosage: 1 DF, UNK
     Route: 048
     Dates: start: 20150801
  5. AZITROMICINA [Suspect]
     Active Substance: AZITHROMYCIN DIHYDRATE
     Indication: TONSILLITIS
     Dosage: 500 MG, QD
     Route: 048
     Dates: start: 20150801, end: 20150804

REACTIONS (1)
  - Drug reaction with eosinophilia and systemic symptoms [Unknown]

NARRATIVE: CASE EVENT DATE: 20150801
